FAERS Safety Report 4695180-7 (Version None)
Quarter: 2005Q2

REPORT INFORMATION
  Report Type: 
  Country: None (occurrence: None)
  Receive Date: 20050614
  Receipt Date: 20050311
  Transmission Date: 20051028
  Serious: No
  Sender: FDA-Public Use
  Company Number: USA050188899

PATIENT
  Sex: Male

DRUGS (1)
  1. CIALIS [Suspect]
     Indication: ERECTILE DYSFUNCTION
     Dosage: 20 MG AS NEEDED
     Dates: start: 20040901

REACTIONS (4)
  - BACK PAIN [None]
  - MYALGIA [None]
  - SALIVARY HYPERSECRETION [None]
  - STOMACH DISCOMFORT [None]
